FAERS Safety Report 9618018 (Version 3)
Quarter: 2015Q4

REPORT INFORMATION
  Report Type: Report from Study
  Country: US (occurrence: US)
  Receive Date: 20131011
  Receipt Date: 20151015
  Transmission Date: 20160305
  Serious: Yes (Other)
  Sender: FDA-Public Use
  Company Number: US-ROCHE-1287766

PATIENT
  Age: 39 Year
  Sex: Female

DRUGS (12)
  1. RESTASIS [Concomitant]
     Active Substance: CYCLOSPORINE
     Dosage: OPTHALAMIC EMURSION 1GTT IN BOTH EYES
     Route: 047
  2. EPIPEN [Concomitant]
     Active Substance: EPINEPHRINE
     Route: 030
  3. LOPRESSOR [Concomitant]
     Active Substance: METOPROLOL TARTRATE
     Route: 048
  4. ADVIL [Concomitant]
     Active Substance: IBUPROFEN
     Dosage: PRN
     Route: 048
  5. OMEPRAZOLE. [Concomitant]
     Active Substance: OMEPRAZOLE
     Route: 048
  6. TOPROL XL [Concomitant]
     Active Substance: METOPROLOL SUCCINATE
     Route: 048
  7. XOLAIR [Suspect]
     Active Substance: OMALIZUMAB
     Indication: IDIOPATHIC URTICARIA
     Route: 058
     Dates: start: 20121015
  8. DELTASONE (UNITED STATES) [Concomitant]
     Route: 048
  9. XOLAIR [Suspect]
     Active Substance: OMALIZUMAB
     Route: 058
     Dates: start: 20121015
  10. XOLAIR [Suspect]
     Active Substance: OMALIZUMAB
     Route: 058
  11. CARDIZEM CD [Concomitant]
     Active Substance: DILTIAZEM HYDROCHLORIDE
     Route: 048
  12. DELTASONE (UNITED STATES) [Concomitant]
     Route: 048

REACTIONS (7)
  - Oral herpes [Unknown]
  - Diarrhoea [Unknown]
  - Flushing [Unknown]
  - Urticaria [Unknown]
  - Angioedema [Unknown]
  - Blood cholesterol increased [Unknown]
  - Pruritus [Unknown]

NARRATIVE: CASE EVENT DATE: 20121212
